FAERS Safety Report 24886293 (Version 1)
Quarter: 2025Q1

REPORT INFORMATION
  Report Type: Spontaneous
  Country: US (occurrence: US)
  Receive Date: 20250126
  Receipt Date: 20250126
  Transmission Date: 20250408
  Serious: Yes (Other)
  Sender: BEIGENE
  Company Number: US-BEIGENE-BGN-2025-001052

PATIENT
  Age: 87 Year

DRUGS (2)
  1. BRUKINSA [Suspect]
     Active Substance: ZANUBRUTINIB
     Indication: Non-Hodgkin^s lymphoma
     Dosage: 160 MILLIGRAM, Q12H (160MG OF BRUKINSA IN THE MORNING AND 160 AT NIGHT)
  2. BRUKINSA [Suspect]
     Active Substance: ZANUBRUTINIB
     Dosage: 80 MILLIGRAM, Q12H (1 IN THE MORNING AND 1 AT NIGHT)

REACTIONS (8)
  - Cardiac flutter [Recovering/Resolving]
  - Presyncope [Recovering/Resolving]
  - Hot flush [Recovering/Resolving]
  - Blood pressure increased [Recovering/Resolving]
  - Myalgia [Unknown]
  - Arthralgia [Unknown]
  - Platelet count decreased [Unknown]
  - White blood cell count decreased [Unknown]
